FAERS Safety Report 21915960 (Version 1)
Quarter: 2023Q1

REPORT INFORMATION
  Report Type: Spontaneous
  Country: FR (occurrence: FR)
  Receive Date: 20230126
  Receipt Date: 20230126
  Transmission Date: 20230417
  Serious: Yes (Other)
  Sender: FDA-Public Use
  Company Number: None

PATIENT
  Age: 37 Year
  Sex: Female

DRUGS (1)
  1. TRAMADOL [Suspect]
     Active Substance: TRAMADOL
     Indication: Product used for unknown indication
     Dosage: 1 BOX OF TRAMADOL 50 MG EVERY 3 DAYS  FOR 7  DAYS
     Route: 065
     Dates: start: 20221215, end: 20221222

REACTIONS (2)
  - Drug abuse [Recovering/Resolving]
  - Product prescribing issue [Recovering/Resolving]

NARRATIVE: CASE EVENT DATE: 20221215
